FAERS Safety Report 11071096 (Version 1)
Quarter: 2015Q2

REPORT INFORMATION
  Report Type: Spontaneous
  Country: US (occurrence: US)
  Receive Date: 20150428
  Receipt Date: 20150428
  Transmission Date: 20150821
  Serious: Yes (Hospitalization)
  Sender: FDA-Public Use
  Company Number: US-ACCORD-030299

PATIENT
  Age: 50 Year
  Sex: Male

DRUGS (18)
  1. CLINDAMYCIN [Concomitant]
     Active Substance: CLINDAMYCIN\CLINDAMYCIN PHOSPHATE
  2. OMEPRAZOLE. [Concomitant]
     Active Substance: OMEPRAZOLE
  3. TOPIRAMATE. [Concomitant]
     Active Substance: TOPIRAMATE
  4. ESCITALOPRAM [Suspect]
     Active Substance: ESCITALOPRAM OXALATE
     Indication: DEPRESSION
     Route: 048
     Dates: start: 20150409, end: 20150411
  5. HYDROCODONE [Concomitant]
     Active Substance: HYDROCODONE
  6. ACICLOVIR [Concomitant]
     Active Substance: ACYCLOVIR
  7. SUMATRIPTAN. [Concomitant]
     Active Substance: SUMATRIPTAN
  8. XANAX [Concomitant]
     Active Substance: ALPRAZOLAM
  9. VALIUM [Concomitant]
     Active Substance: DIAZEPAM
  10. RIZATRIPTAN [Concomitant]
     Active Substance: RIZATRIPTAN
  11. DILTIAZEM [Concomitant]
     Active Substance: DILTIAZEM
  12. OXYCODONE/OXYCODONE HYDROCHLORIDE/OXYCODONE PECTINATE/OXYCODONE TEREPHTHALATE [Concomitant]
  13. BETAMETHASONE DIPROPIONATE/CLOTRIMAZOLE [Concomitant]
  14. WELLBUTRIN [Concomitant]
     Active Substance: BUPROPION HYDROCHLORIDE
  15. PRAZOSIN [Concomitant]
     Active Substance: PRAZOSIN
  16. CHLORHEXIDINE [Concomitant]
     Active Substance: CHLORHEXIDINE
     Dosage: MOUTH RINSE
  17. PREDNISONE. [Concomitant]
     Active Substance: PREDNISONE
  18. LANTUS [Concomitant]
     Active Substance: INSULIN GLARGINE

REACTIONS (5)
  - Cerebrovascular accident [Not Recovered/Not Resolved]
  - Dysarthria [Not Recovered/Not Resolved]
  - Drooling [Not Recovered/Not Resolved]
  - Pain [Not Recovered/Not Resolved]
  - Hypoaesthesia [Not Recovered/Not Resolved]

NARRATIVE: CASE EVENT DATE: 20150411
